FAERS Safety Report 5279362-1 (Version None)
Quarter: 2007Q1

REPORT INFORMATION
  Report Type: 
  Country: None (occurrence: None)
  Receive Date: 20070328
  Receipt Date: 20060206
  Transmission Date: 20070707
  Serious: No
  Sender: FDA-Public Use
  Company Number: US-AMGEN-US155059

PATIENT
  Sex: Male

DRUGS (3)
  1. NEULASTA [Suspect]
     Indication: NEUTROPENIA
     Route: 058
     Dates: start: 20050919
  2. LORAZEPAM [Concomitant]
  3. WINRHO [Concomitant]
     Route: 042
     Dates: start: 20050921, end: 20051005

REACTIONS (3)
  - CONVULSION [None]
  - HEADACHE [None]
  - PYREXIA [None]
